FAERS Safety Report 4995651-X (Version None)
Quarter: 2006Q2

REPORT INFORMATION
  Report Type: 
  Country: None (occurrence: None)
  Receive Date: 20060504
  Receipt Date: 20060426
  Transmission Date: 20061013
  Serious: Yes (Other)
  Sender: FDA-Public Use
  Company Number: 2006015702

PATIENT
  Age: 75 Year
  Sex: Female
  Weight: 58.0604 kg

DRUGS (3)
  1. LIPITOR [Suspect]
     Indication: BLOOD CHOLESTEROL INCREASED
     Dosage: 10 MG (10 MG, 1 IN 1 D)
  2. SYNTHROID [Concomitant]
  3. PRILOSEC [Concomitant]

REACTIONS (12)
  - BLOOD CHOLESTEROL INCREASED [None]
  - BREAST MICROCALCIFICATION [None]
  - COLON CANCER [None]
  - COLONOSCOPY ABNORMAL [None]
  - HAEMATOCHEZIA [None]
  - HYPERTENSION [None]
  - HYPOTENSION [None]
  - ORAL INTAKE REDUCED [None]
  - OSTEOPOROSIS [None]
  - POLYP [None]
  - RESORPTION BONE INCREASED [None]
  - WEIGHT DECREASED [None]
